FAERS Safety Report 26216263 (Version 1)
Quarter: 2025Q4

REPORT INFORMATION
  Report Type: Spontaneous
  Country: EG (occurrence: EG)
  Receive Date: 20251231
  Receipt Date: 20251231
  Transmission Date: 20260117
  Serious: Yes (Other)
  Sender: HIKMA
  Company Number: EG-HIKMA PHARMACEUTICALS-EG-H14001-25-13986

PATIENT
  Age: 35 Year
  Sex: Female
  Weight: 80 kg

DRUGS (4)
  1. GEMCITABINE HYDROCHLORIDE [Suspect]
     Active Substance: GEMCITABINE HYDROCHLORIDE
     Indication: Urethral cancer metastatic
     Dosage: 1800 MILLIGRAM, 3W (DAY ONE, DAY EIGHT (TWO DOSES PER CYCLE) REPEATED EVERY 21 DAYS
  2. GEMCITABINE HYDROCHLORIDE [Suspect]
     Active Substance: GEMCITABINE HYDROCHLORIDE
     Dosage: 1800 MILLIGRAM, 3W (CYCLE TWO, DAY ONE)
     Dates: start: 20250911
  3. CARBOPLATIN [Suspect]
     Active Substance: CARBOPLATIN
     Indication: Urethral cancer metastatic
     Dosage: 450 MILLIGRAM, 3W
  4. CARBOPLATIN [Suspect]
     Active Substance: CARBOPLATIN
     Dosage: 450 MILLIGRAM, 3W (CYCLE TWO, DOSE TWO)
     Dates: start: 20250911

REACTIONS (3)
  - Deep vein thrombosis [Recovered/Resolved]
  - Oedema peripheral [Recovered/Resolved]
  - Pyrexia [Recovered/Resolved]

NARRATIVE: CASE EVENT DATE: 20250911
